FAERS Safety Report 10392053 (Version 7)
Quarter: 2015Q1

REPORT INFORMATION
  Report Type: Not Available
  Country: IT (occurrence: IT)
  Receive Date: 20140819
  Receipt Date: 20150311
  Transmission Date: 20150720
  Serious: Yes (Hospitalization)
  Sender: FDA-Public Use
  Company Number: IT-BEH-2014044535

PATIENT
  Age: 2 Year
  Sex: Male
  Weight: 10.4 kg

DRUGS (2)
  1. CEFTRIAXONE. [Concomitant]
     Active Substance: CEFTRIAXONE
  2. PRIVIGEN [Suspect]
     Active Substance: HUMAN IMMUNOGLOBULIN G
     Indication: KAWASAKI^S DISEASE
     Route: 042
     Dates: start: 20140808, end: 20140808

REACTIONS (20)
  - Vasoconstriction [Recovered/Resolved]
  - Seizure [Recovered/Resolved]
  - Hyperpyrexia [Recovered/Resolved]
  - Tremor [Recovered/Resolved]
  - Cyanosis [Recovered/Resolved]
  - Body temperature increased [Recovered/Resolved]
  - Irritability [Recovered/Resolved]
  - Agitation [Recovered/Resolved]
  - Rash [Recovered/Resolved]
  - Pallor [Recovered/Resolved]
  - Condition aggravated [Recovered/Resolved]
  - Clonic convulsion [Recovered/Resolved]
  - Body temperature decreased [Recovered/Resolved]
  - Loss of consciousness [Recovered/Resolved]
  - Crying [Recovered/Resolved]
  - Eye movement disorder [Recovered/Resolved]
  - Hypertonia [Recovered/Resolved]
  - Aggression [Recovered/Resolved]
  - Restlessness [Recovered/Resolved]
  - Skin reaction [Recovered/Resolved]

NARRATIVE: CASE EVENT DATE: 20140808
